FAERS Safety Report 9915503 (Version 1)
Quarter: 2014Q1

REPORT INFORMATION
  Report Type: Spontaneous
  Country: US (occurrence: US)
  Receive Date: 20140221
  Receipt Date: 20140221
  Transmission Date: 20141002
  Serious: No
  Sender: FDA-Public Use
  Company Number: US-009507513-1401USA014491

PATIENT
  Age: 55 Year
  Sex: Male

DRUGS (3)
  1. PEGINTRON [Suspect]
     Indication: HEPATITIS C
     Dosage: 0.5 ML,Q7DAYS
     Route: 058
     Dates: start: 20140129
  2. REBETOL [Suspect]
     Indication: HEPATITIS C
     Dosage: 800 MG,BID
     Route: 048
     Dates: start: 20140129
  3. INCIVEK [Suspect]
     Indication: HEPATITIS C
     Dosage: TOTAL DAILY DOSE: 2 CAPS, TID
     Route: 048
     Dates: start: 20140129

REACTIONS (5)
  - Vomiting [Unknown]
  - Influenza like illness [Unknown]
  - Chills [Unknown]
  - Pyrexia [Unknown]
  - Nausea [Unknown]
